FAERS Safety Report 11237539 (Version 1)
Quarter: 2015Q3

REPORT INFORMATION
  Report Type: Spontaneous
  Country: BR (occurrence: BR)
  Receive Date: 20150703
  Receipt Date: 20150703
  Transmission Date: 20151125
  Serious: Yes (Hospitalization)
  Sender: FDA-Public Use
  Company Number: BR-SA-2015SA084885

PATIENT
  Age: 30 Year
  Sex: Female

DRUGS (1)
  1. CLOMID [Suspect]
     Active Substance: CLOMIPHENE CITRATE
     Indication: OVULATION INDUCTION
     Route: 048
     Dates: start: 20150529, end: 20150602

REACTIONS (4)
  - Adnexa uteri pain [Recovered/Resolved]
  - Vomiting [Recovered/Resolved]
  - Cholelithiasis [Recovered/Resolved]
  - Nausea [Recovered/Resolved]

NARRATIVE: CASE EVENT DATE: 20150605
